FAERS Safety Report 25036072 (Version 4)
Quarter: 2025Q3

REPORT INFORMATION
  Report Type: Report from Study
  Country: JP (occurrence: JP)
  Receive Date: 20250304
  Receipt Date: 20250701
  Transmission Date: 20251020
  Serious: Yes (Hospitalization)
  Sender: EISAI
  Company Number: JP-Eisai-EC-2025-185023

PATIENT
  Age: 77 Year
  Sex: Male

DRUGS (4)
  1. LEQEMBI [Suspect]
     Active Substance: LECANEMAB-IRMB
     Indication: Cognitive disorder
     Route: 041
     Dates: start: 20250109, end: 20250109
  2. LEQEMBI [Suspect]
     Active Substance: LECANEMAB-IRMB
     Route: 041
     Dates: start: 20250214, end: 20250214
  3. BICALUTAMIDE [Concomitant]
     Active Substance: BICALUTAMIDE
  4. GOSERELIN ACETATE [Concomitant]
     Active Substance: GOSERELIN ACETATE

REACTIONS (3)
  - Psychiatric symptom [Unknown]
  - Cerebral haemorrhage [Not Recovered/Not Resolved]
  - Feeding disorder [Not Recovered/Not Resolved]

NARRATIVE: CASE EVENT DATE: 20250101
